FAERS Safety Report 6122453-3 (Version None)
Quarter: 2009Q1

REPORT INFORMATION
  Report Type: 
  Country: None (occurrence: None)
  Receive Date: 20090318
  Receipt Date: 20081209
  Transmission Date: 20090719
  Serious: No
  Sender: FDA-Public Use
  Company Number: US-ASTRAZENECA-2008UW27322

PATIENT
  Age: 68 Year
  Sex: Male
  Weight: 77.1 kg

DRUGS (1)
  1. SYMBICORT [Suspect]
     Indication: ASTHMA
     Dosage: 160 UG, ONCE A DAY AT BEDTIME
     Route: 055
     Dates: start: 20081204

REACTIONS (1)
  - CHEST DISCOMFORT [None]
